FAERS Safety Report 6830606-1 (Version None)
Quarter: 2010Q3

REPORT INFORMATION
  Report Type: 
  Country: None (occurrence: None)
  Receive Date: 20100712
  Receipt Date: 20100702
  Transmission Date: 20110219
  Serious: Yes (Other)
  Sender: FDA-Public Use
  Company Number: US-BAXTER-2010BH016719

PATIENT
  Sex: Female

DRUGS (15)
  1. GAMMAGARD S/D [Suspect]
     Indication: IMMUNODEFICIENCY COMMON VARIABLE
     Route: 042
     Dates: start: 20100501
  2. GAMMAGARD S/D [Suspect]
     Indication: PRIMARY IMMUNODEFICIENCY SYNDROME
     Route: 042
     Dates: start: 20100501
  3. HYDROXYCHLOROQUINE [Concomitant]
  4. WELCHOL [Concomitant]
  5. ADVAIR DISKUS 100/50 [Concomitant]
  6. MUCINEX [Concomitant]
  7. VITAMIN D [Concomitant]
  8. PROBIOTICA [Concomitant]
  9. RESTASIS [Concomitant]
  10. NEBIVOLOL [Concomitant]
     Indication: BLOOD PRESSURE
  11. VITAMIN B12 FOR INJECTION [Concomitant]
  12. CIPRO [Concomitant]
  13. RIFAXIMIN [Concomitant]
  14. SOLU-CORTEF [Concomitant]
     Indication: PREMEDICATION
     Route: 042
  15. DIPHENHYDRAMINE [Concomitant]
     Indication: PREMEDICATION
     Route: 042

REACTIONS (2)
  - DIZZINESS [None]
  - HYPERTENSION [None]
